FAERS Safety Report 11591912 (Version 3)
Quarter: 2016Q1

REPORT INFORMATION
  Report Type: Spontaneous
  Country: US (occurrence: US)
  Receive Date: 20151005
  Receipt Date: 20160127
  Transmission Date: 20160525
  Serious: Yes (Other)
  Sender: FDA-Public Use
  Company Number: US-009507513-1509USA012196

PATIENT
  Age: 32 Year
  Sex: Female
  Weight: 149.66 kg

DRUGS (2)
  1. NEXPLANON [Suspect]
     Active Substance: ETONOGESTREL
     Indication: CONTRACEPTION
     Dosage: 68 MG, UNK
     Route: 059
     Dates: start: 20130108, end: 20151113
  2. FLONASE [Concomitant]
     Active Substance: FLUTICASONE PROPIONATE

REACTIONS (8)
  - Cystitis [Unknown]
  - Pain in extremity [Unknown]
  - Complication associated with device [Recovered/Resolved]
  - Hypoaesthesia [Unknown]
  - Metrorrhagia [Unknown]
  - Surgery [Recovered/Resolved]
  - Peripheral swelling [Unknown]
  - Device difficult to use [Recovered/Resolved]

NARRATIVE: CASE EVENT DATE: 20150921
